FAERS Safety Report 5039848-1 (Version None)
Quarter: 2006Q2

REPORT INFORMATION
  Report Type: 
  Country: None (occurrence: None)
  Receive Date: 20060630
  Receipt Date: 20060621
  Transmission Date: 20061013
  Serious: Yes (Disabling, Other)
  Sender: FDA-Public Use
  Company Number: US-JNJFOC-20060305629

PATIENT
  Sex: Male
  Weight: 70.31 kg

DRUGS (5)
  1. REMICADE [Suspect]
     Indication: RHEUMATOID ARTHRITIS
     Dosage: INFLIXIMAB THERAPY INITIATED IN THE LAST TWO YEARS
     Route: 042
  2. METHOTREXATE [Concomitant]
     Indication: RHEUMATOID ARTHRITIS
     Dosage: FOR MANY YEARS
  3. NAPROSYN [Concomitant]
     Dosage: STARTED BEFORE INFLIXIMAB
  4. FOLIC ACID [Concomitant]
  5. NSAIDS [Concomitant]

REACTIONS (6)
  - ARTHRALGIA [None]
  - BONE MARROW DISORDER [None]
  - CHEST DISCOMFORT [None]
  - DEEP VEIN THROMBOSIS [None]
  - DYSPNOEA [None]
  - POLYCYTHAEMIA [None]
